FAERS Safety Report 13392794 (Version 2)
Quarter: 2017Q2

REPORT INFORMATION
  Report Type: Spontaneous
  Country: US (occurrence: US)
  Receive Date: 20170331
  Receipt Date: 20170427
  Transmission Date: 20170830
  Serious: Yes (Death, Hospitalization)
  Sender: FDA-Public Use
  Company Number: US-JNJFOC-20170331677

PATIENT
  Age: 83 Year
  Sex: Male

DRUGS (2)
  1. XARELTO [Suspect]
     Active Substance: RIVAROXABAN
     Indication: ATRIAL FIBRILLATION
     Dosage: 10-15 MG
     Route: 048
     Dates: start: 201303, end: 201502
  2. XARELTO [Suspect]
     Active Substance: RIVAROXABAN
     Indication: CEREBROVASCULAR ACCIDENT PROPHYLAXIS
     Dosage: 10-15 MG
     Route: 048
     Dates: start: 201303, end: 201502

REACTIONS (3)
  - Traumatic intracranial haemorrhage [Recovering/Resolving]
  - Coagulopathy [Unknown]
  - Fall [Unknown]

NARRATIVE: CASE EVENT DATE: 201502
